FAERS Safety Report 6313872-0 (Version None)
Quarter: 2009Q3

REPORT INFORMATION
  Report Type: 
  Country: None (occurrence: None)
  Receive Date: 20090814
  Receipt Date: 20090731
  Transmission Date: 20100115
  Serious: Yes (Other)
  Sender: FDA-Public Use
  Company Number: PHHY2008JP27530

PATIENT
  Age: 59 Year
  Sex: Male

DRUGS (1)
  1. VISUDYNE [Suspect]
     Indication: POLYPOIDAL CHOROIDAL VASCULOPATHY

REACTIONS (1)
  - MACULOPATHY [None]
